FAERS Safety Report 14143115 (Version 3)
Quarter: 2017Q4

REPORT INFORMATION
  Report Type: Report from Study
  Country: CA (occurrence: CA)
  Receive Date: 20171030
  Receipt Date: 20171220
  Transmission Date: 20180321
  Serious: Yes (Hospitalization)
  Sender: FDA-Public Use
  Company Number: CA-EXELIXIS-CABO-17011059

PATIENT
  Age: 40 Year
  Sex: Female
  Weight: 57.6 kg

DRUGS (5)
  1. COMETRIQ [Suspect]
     Active Substance: CABOZANTINIB S-MALATE
     Dosage: 120 MG, QD
     Route: 048
     Dates: start: 20170322, end: 20170815
  2. COMETRIQ [Suspect]
     Active Substance: CABOZANTINIB S-MALATE
     Indication: MEDULLARY THYROID CANCER
     Dosage: 140 MG, QD
     Route: 048
     Dates: start: 20170309
  3. RANITIDINE. [Concomitant]
     Active Substance: RANITIDINE
     Indication: GASTROOESOPHAGEAL REFLUX DISEASE
  4. LEVOTHYROXINE. [Concomitant]
     Active Substance: LEVOTHYROXINE
     Indication: HYPOTHYROIDISM
  5. LOMOTIL [Suspect]
     Active Substance: ATROPINE SULFATE\DIPHENOXYLATE HYDROCHLORIDE
     Indication: DIARRHOEA
     Dosage: UNK
     Dates: start: 20170707, end: 20170819

REACTIONS (11)
  - Colitis [Unknown]
  - Pleural effusion [Unknown]
  - Anal incontinence [Unknown]
  - Diarrhoea [Unknown]
  - Pancreatitis [Not Recovered/Not Resolved]
  - Ileus [Recovering/Resolving]
  - Haematemesis [Recovered/Resolved]
  - Cancer pain [Unknown]
  - Aura [Unknown]
  - Hepatic function abnormal [Not Recovered/Not Resolved]
  - Pathological fracture [Unknown]

NARRATIVE: CASE EVENT DATE: 20170330
